FAERS Safety Report 22048537 (Version 1)
Quarter: 2023Q1

REPORT INFORMATION
  Report Type: Spontaneous
  Country: US (occurrence: None)
  Receive Date: 20230228
  Receipt Date: 20230228
  Transmission Date: 20230417
  Serious: No
  Sender: FDA-Public Use
  Company Number: None

PATIENT
  Age: 80 Year
  Sex: Male
  Weight: 123.01 kg

DRUGS (10)
  1. ABIRATERONE [Suspect]
     Active Substance: ABIRATERONE
     Indication: Prostate cancer
     Dosage: FREQUENCY : DAILY;?
     Route: 048
     Dates: start: 20220913
  2. ALEVE [Concomitant]
     Active Substance: NAPROXEN SODIUM
  3. AMOXICILLIN [Concomitant]
     Active Substance: AMOXICILLIN
  4. BENAZEPRIL [Concomitant]
     Active Substance: BENAZEPRIL HYDROCHLORIDE
  5. FUROSEMIDE [Concomitant]
  6. LUPRON [Concomitant]
     Active Substance: LEUPROLIDE ACETATE
  7. METAMUCIL [Concomitant]
     Active Substance: PLANTAGO SEED
  8. OCUVITE [Concomitant]
     Active Substance: VITAMINS
  9. PEPCID [Concomitant]
     Active Substance: FAMOTIDINE
  10. TEMAZEPAM [Concomitant]
     Active Substance: TEMAZEPAM

REACTIONS (1)
  - Pneumonia viral [None]
